FAERS Safety Report 22918787 (Version 2)
Quarter: 2023Q4

REPORT INFORMATION
  Report Type: Spontaneous
  Country: US (occurrence: US)
  Receive Date: 20230907
  Receipt Date: 20231103
  Transmission Date: 20240110
  Serious: No
  Sender: FDA-Public Use
  Company Number: US-BRISTOL-MYERS SQUIBB COMPANY-2023-126665

PATIENT
  Age: 81 Year
  Sex: Female
  Weight: 58.97 kg

DRUGS (1)
  1. POMALYST [Suspect]
     Active Substance: POMALIDOMIDE
     Indication: Plasma cell myeloma
     Dosage: FREQ: 3W, 1 W OFF
     Route: 048

REACTIONS (6)
  - Arthralgia [Recovering/Resolving]
  - Memory impairment [Unknown]
  - Bradyphrenia [Unknown]
  - Off label use [Unknown]
  - Brain fog [Recovering/Resolving]
  - Constipation [Unknown]
